FAERS Safety Report 16766625 (Version 2)
Quarter: 2019Q3

REPORT INFORMATION
  Report Type: Spontaneous
  Country: US (occurrence: US)
  Receive Date: 20190903
  Receipt Date: 20190924
  Transmission Date: 20191005
  Serious: No
  Sender: FDA-Public Use
  Company Number: US-PFIZER INC-2019374458

PATIENT
  Age: 79 Year
  Sex: Female
  Weight: 79.82 kg

DRUGS (1)
  1. IBRANCE [Suspect]
     Active Substance: PALBOCICLIB
     Indication: BREAST CANCER METASTATIC
     Dosage: 125 MG, CYCLIC (DAYS 1-21 Q 28 DAYS)
     Route: 048
     Dates: start: 20171112

REACTIONS (6)
  - Oral mucosal eruption [Unknown]
  - Nausea [Unknown]
  - Arthralgia [Unknown]
  - Stomatitis [Unknown]
  - Groin pain [Unknown]
  - Neoplasm progression [Unknown]
